FAERS Safety Report 13256425 (Version 1)
Quarter: 2017Q1

REPORT INFORMATION
  Report Type: Spontaneous
  Country: US (occurrence: US)
  Receive Date: 20170220
  Receipt Date: 20170220
  Transmission Date: 20170428
  Serious: Yes (Hospitalization)
  Sender: FDA-Public Use
  Company Number: None

PATIENT
  Age: 40 Year
  Sex: Male

DRUGS (16)
  1. METFORMIN [Concomitant]
     Active Substance: METFORMIN HYDROCHLORIDE
  2. TOVIAZ [Concomitant]
     Active Substance: FESOTERODINE FUMARATE
  3. PERCOCET [Concomitant]
     Active Substance: ACETAMINOPHEN\OXYCODONE HYDROCHLORIDE
  4. PROCHLORPERAZINE. [Concomitant]
     Active Substance: PROCHLORPERAZINE
  5. NEUPOGEN [Suspect]
     Active Substance: FILGRASTIM
     Indication: NEOPLASM MALIGNANT
     Dosage: 480 MCG QD X 11 DAYS SQ
     Route: 058
     Dates: start: 20170119, end: 201702
  6. NEUPOGEN [Suspect]
     Active Substance: FILGRASTIM
     Indication: AGRANULOCYTOSIS
     Dosage: 480 MCG QD X 11 DAYS SQ
     Route: 058
     Dates: start: 20170119, end: 201702
  7. MAGOX [Concomitant]
  8. LOSARTAN. [Concomitant]
     Active Substance: LOSARTAN
  9. FLONASE [Concomitant]
     Active Substance: FLUTICASONE PROPIONATE
  10. CLONIDINE. [Concomitant]
     Active Substance: CLONIDINE
  11. POTASSIUM CHLORIDE. [Concomitant]
     Active Substance: POTASSIUM CHLORIDE
  12. LOPERAMIDE [Concomitant]
     Active Substance: LOPERAMIDE
  13. HYDRALAZINE [Concomitant]
     Active Substance: HYDRALAZINE HYDROCHLORIDE
  14. FOLIC ACID. [Concomitant]
     Active Substance: FOLIC ACID
  15. LIPITOR [Concomitant]
     Active Substance: ATORVASTATIN CALCIUM
  16. NORVASC [Concomitant]
     Active Substance: AMLODIPINE BESYLATE

REACTIONS (1)
  - Pneumonia [None]

NARRATIVE: CASE EVENT DATE: 20170202
